FAERS Safety Report 7296307-3 (Version None)
Quarter: 2011Q1

REPORT INFORMATION
  Report Type: 
  Country: None (occurrence: None)
  Receive Date: 20110216
  Receipt Date: 20110214
  Transmission Date: 20110831
  Serious: Yes (Other)
  Sender: FDA-Public Use
  Company Number: US-JNJCH-2011003910

PATIENT
  Age: 38 Year
  Sex: Female
  Weight: 72.6 kg

DRUGS (2)
  1. BENADRYL [Suspect]
     Indication: HYPOAESTHESIA
     Dosage: TEXT:THREE MILLITERS 3-5 SYRINGES
     Route: 030
     Dates: start: 20110214, end: 20110214
  2. SITAGLIPTIN [Concomitant]
     Indication: DIABETES MELLITUS
     Dosage: TEXT:100MG ONCE DAILY
     Route: 065

REACTIONS (3)
  - OFF LABEL USE [None]
  - SYNCOPE [None]
  - HYPOAESTHESIA [None]
